FAERS Safety Report 4519356-4 (Version None)
Quarter: 2004Q4

REPORT INFORMATION
  Report Type: 
  Country: None (occurrence: None)
  Receive Date: 20041202
  Receipt Date: 20041119
  Transmission Date: 20050328
  Serious: Yes (Other)
  Sender: FDA-Public Use
  Company Number: 2004097601

PATIENT
  Age: 55 Year
  Sex: Male

DRUGS (4)
  1. BEXTRA [Suspect]
     Indication: RHEUMATOID ARTHRITIS
     Dosage: 10 MG (10 MG, 1 IN 1 D), ORAL
     Route: 048
     Dates: start: 20031101
  2. ALLOPURINOL [Suspect]
     Indication: GOUT
     Dosage: (300 MG)
  3. NAPROXEN [Suspect]
     Indication: RHEUMATOID ARTHRITIS
     Dosage: (500 MG)
  4. HYDROCODONE (HYDROCODONE) [Suspect]
     Indication: RHEUMATOID ARTHRITIS
     Dosage: (500 MG)

REACTIONS (7)
  - ARTHRITIS [None]
  - CARDIAC DISORDER [None]
  - CHEST PAIN [None]
  - COMA [None]
  - FEELING HOT [None]
  - RESPIRATORY DISORDER [None]
  - VISUAL DISTURBANCE [None]
